FAERS Safety Report 5307216-0 (Version None)
Quarter: 2007Q1

REPORT INFORMATION
  Report Type: 
  Country: None (occurrence: None)
  Receive Date: 20070201
  Receipt Date: 20061205
  Transmission Date: 20070707
  Serious: No
  Sender: FDA-Public Use
  Company Number: 2006PV026356

PATIENT
  Sex: Female

DRUGS (7)
  1. BYETTA [Suspect]
     Indication: DIABETES MELLITUS NON-INSULIN-DEPENDENT
     Dosage: 5 MCG; BID; SC
     Route: 058
     Dates: start: 20061201
  2. LANTUS [Concomitant]
  3. METFORMIN HCL [Concomitant]
  4. TRICOR [Concomitant]
  5. LIPITOR [Concomitant]
  6. PLAVIX [Concomitant]
  7. ASPIRIN [Concomitant]

REACTIONS (4)
  - CHEST DISCOMFORT [None]
  - CONDITION AGGRAVATED [None]
  - MUSCLE TIGHTNESS [None]
  - PAIN IN JAW [None]
